FAERS Safety Report 12639843 (Version 1)
Quarter: 2016Q3

REPORT INFORMATION
  Report Type: Spontaneous
  Country: US (occurrence: None)
  Receive Date: 20160809
  Receipt Date: 20160809
  Transmission Date: 20161109
  Serious: No
  Sender: FDA-Public Use
  Company Number: None

PATIENT
  Age: 71 Year
  Sex: Male
  Weight: 107.96 kg

DRUGS (1)
  1. NITROSTAT [Suspect]
     Active Substance: NITROGLYCERIN
     Indication: ANGINA PECTORIS
     Dosage: 2-3 AS NEEDED SUBLINGUAL ONLY AS NEEDED
     Route: 060

REACTIONS (2)
  - Product packaging issue [None]
  - Product physical issue [None]

NARRATIVE: CASE EVENT DATE: 20160726
